FAERS Safety Report 19097749 (Version 1)
Quarter: 2021Q2

REPORT INFORMATION
  Report Type: Spontaneous
  Country: US (occurrence: US)
  Receive Date: 20210406
  Receipt Date: 20210406
  Transmission Date: 20210717
  Serious: No
  Sender: FDA-Public Use
  Company Number: US-SA-2021SA111347

PATIENT
  Age: 40 Year
  Sex: Male

DRUGS (1)
  1. DUPIXENT [Suspect]
     Active Substance: DUPILUMAB
     Indication: RHEUMATOID ARTHRITIS
     Dosage: 200MG / 1.14 M
     Route: 058
     Dates: start: 202101

REACTIONS (8)
  - Erythema [Unknown]
  - Eye pain [Unknown]
  - Pruritus [Unknown]
  - Product dose omission issue [Unknown]
  - Condition aggravated [Unknown]
  - Skin exfoliation [Unknown]
  - Injection site reaction [Unknown]
  - Product use in unapproved indication [Unknown]

NARRATIVE: CASE EVENT DATE: 20210301
